FAERS Safety Report 8484534-9 (Version None)
Quarter: 2012Q3

REPORT INFORMATION
  Report Type: 
  Country: None (occurrence: None)
  Receive Date: 20120703
  Receipt Date: 20120629
  Transmission Date: 20120928
  Serious: Yes (Other)
  Sender: FDA-Public Use
  Company Number: CO-BAYER-2012-064559

PATIENT
  Sex: Female

DRUGS (1)
  1. AVELOX [Suspect]
     Indication: SINUSITIS
     Dosage: UNK
     Route: 048
     Dates: start: 20120604, end: 20120611

REACTIONS (5)
  - SKIN IRRITATION [None]
  - FACIAL PAIN [None]
  - HEADACHE [None]
  - MALAISE [None]
  - POISONING [None]
